FAERS Safety Report 8458663 (Version 2)
Quarter: 2016Q3

REPORT INFORMATION
  Report Type: Spontaneous
  Country: US (occurrence: US)
  Receive Date: 20120314
  Receipt Date: 20160826
  Transmission Date: 20161109
  Serious: Yes (Hospitalization, Other)
  Sender: FDA-Public Use
  Company Number: US-ROCHE-1046600

PATIENT
  Age: 52 Year
  Sex: Female

DRUGS (9)
  1. BONIVA [Suspect]
     Active Substance: IBANDRONATE SODIUM
     Indication: OSTEOPOROSIS
     Route: 065
     Dates: start: 20060120, end: 20070719
  2. FOSAMAX [Suspect]
     Active Substance: ALENDRONATE SODIUM
     Indication: OSTEOPOROSIS
     Route: 048
     Dates: start: 20040823, end: 20051207
  3. NEXIUM [Concomitant]
     Active Substance: ESOMEPRAZOLE MAGNESIUM
     Route: 065
     Dates: start: 2006, end: 2009
  4. BONIVA [Suspect]
     Active Substance: IBANDRONATE SODIUM
     Dosage: 3 MG/3 ML
     Route: 042
     Dates: start: 20080523
  5. BONIVA [Suspect]
     Active Substance: IBANDRONATE SODIUM
     Dosage: 3 MG/3 ML
     Route: 042
     Dates: start: 20080924
  6. BONIVA [Suspect]
     Active Substance: IBANDRONATE SODIUM
     Dosage: 3 MG/3 ML
     Route: 042
     Dates: start: 20090527
  7. BONIVA [Suspect]
     Active Substance: IBANDRONATE SODIUM
     Route: 065
     Dates: start: 20081202, end: 20110902
  8. BONIVA [Suspect]
     Active Substance: IBANDRONATE SODIUM
     Indication: OSTEOPOROSIS
     Dosage: 3 MG/3 ML
     Route: 042
     Dates: start: 20070813, end: 20080225
  9. CALTRATE [Concomitant]
     Active Substance: CALCIUM CARBONATE
     Route: 065
     Dates: start: 2006

REACTIONS (10)
  - Anxiety [Unknown]
  - Hyperparathyroidism [Unknown]
  - Femur fracture [Unknown]
  - Suicidal ideation [Unknown]
  - Hypothyroidism [Unknown]
  - Emotional distress [Unknown]
  - Facial bones fracture [Unknown]
  - Spinal compression fracture [Unknown]
  - Low turnover osteopathy [Unknown]
  - Depression [Unknown]

NARRATIVE: CASE EVENT DATE: 200606
